FAERS Safety Report 15998960 (Version 1)
Quarter: 2019Q1

REPORT INFORMATION
  Report Type: Spontaneous
  Country: DE (occurrence: DE)
  Receive Date: 20190223
  Receipt Date: 20190223
  Transmission Date: 20190418
  Serious: Yes (Hospitalization)
  Sender: FDA-Public Use
  Company Number: PHHY2019DE035544

PATIENT
  Age: 58 Year
  Sex: Male
  Weight: 63 kg

DRUGS (8)
  1. LENALIDOMIDE [Suspect]
     Active Substance: LENALIDOMIDE
     Dosage: 15 MG, QD
     Route: 048
     Dates: start: 20190128, end: 20190128
  2. LENALIDOMIDE [Suspect]
     Active Substance: LENALIDOMIDE
     Indication: PLASMA CELL MYELOMA
     Dosage: 15 MG, QD
     Route: 048
     Dates: start: 20171005, end: 20171005
  3. CARFILZOMIB [Suspect]
     Active Substance: CARFILZOMIB
     Indication: PLASMA CELL MYELOMA
     Dosage: 70 MG/M2
     Route: 042
     Dates: start: 20171005, end: 20171005
  4. SAR 650984 [Suspect]
     Active Substance: ISATUXIMAB
     Indication: PLASMA CELL MYELOMA
     Dosage: 10 MG/KG
     Route: 042
     Dates: start: 20171005, end: 20171005
  5. DEXAMETHASONE. [Suspect]
     Active Substance: DEXAMETHASONE
     Indication: PLASMA CELL MYELOMA
     Dosage: 40 MG, QD
     Route: 042
     Dates: start: 20171005, end: 20171005
  6. SAR 650984 [Suspect]
     Active Substance: ISATUXIMAB
     Dosage: 10 MG/KG
     Route: 042
     Dates: start: 20190116, end: 20190116
  7. DEXAMETHASONE. [Suspect]
     Active Substance: DEXAMETHASONE
     Dosage: 40 MG, QD
     Route: 042
     Dates: start: 20190116
  8. CARFILZOMIB [Suspect]
     Active Substance: CARFILZOMIB
     Dosage: 70 MG/M2
     Route: 042
     Dates: start: 20190116, end: 20190116

REACTIONS (1)
  - Chronic obstructive pulmonary disease [Recovered/Resolved]

NARRATIVE: CASE EVENT DATE: 20190129
